FAERS Safety Report 9159557 (Version 1)
Quarter: 2013Q1

REPORT INFORMATION
  Report Type: Spontaneous
  Country: US (occurrence: US)
  Receive Date: 20130313
  Receipt Date: 20130313
  Transmission Date: 20140127
  Serious: Yes (Hospitalization)
  Sender: FDA-Public Use
  Company Number: US-BAYER-2013-028954

PATIENT
  Age: 27 Year
  Sex: Female

DRUGS (7)
  1. YAZ [Suspect]
  2. YASMIN [Suspect]
     Dosage: UNK
  3. DIFFERIN [Concomitant]
     Indication: ACNE
  4. AZELEX [Concomitant]
     Indication: ACNE
  5. ACYCLOVIR [ACICLOVIR] [Concomitant]
     Dosage: 800 MG, UNK
  6. SUMATRIPTAN SUCCINATE [Concomitant]
     Dosage: 50 MG, UNK
  7. ULTRAM [Concomitant]

REACTIONS (1)
  - Pulmonary embolism [None]
